FAERS Safety Report 5819198-3 (Version None)
Quarter: 2008Q3

REPORT INFORMATION
  Report Type: 
  Country: None (occurrence: None)
  Receive Date: 20080723
  Receipt Date: 20080718
  Transmission Date: 20090109
  Serious: Yes (Other)
  Sender: FDA-Public Use
  Company Number: D0057993A

PATIENT
  Age: 36 Year
  Sex: Female

DRUGS (1)
  1. MALARONE [Suspect]
     Indication: MALARIA PROPHYLAXIS
     Dosage: 350MG PER DAY
     Route: 048
     Dates: start: 20080606, end: 20080622

REACTIONS (18)
  - ANGIOEDEMA [None]
  - BODY TEMPERATURE INCREASED [None]
  - CHILLS [None]
  - DERMATITIS ALLERGIC [None]
  - FATIGUE [None]
  - GASTROINTESTINAL PAIN [None]
  - HYPOAESTHESIA [None]
  - JOINT SWELLING [None]
  - MALARIA [None]
  - OEDEMA PERIPHERAL [None]
  - PARAESTHESIA [None]
  - POLYMENORRHOEA [None]
  - PYREXIA [None]
  - RASH [None]
  - RASH GENERALISED [None]
  - SENSATION OF HEAVINESS [None]
  - SLEEP DISORDER [None]
  - TREATMENT NONCOMPLIANCE [None]
